FAERS Safety Report 24730046 (Version 1)
Quarter: 2024Q4

REPORT INFORMATION
  Report Type: Spontaneous
  Country: CN (occurrence: CN)
  Receive Date: 20241213
  Receipt Date: 20241213
  Transmission Date: 20250114
  Serious: Yes (Other)
  Sender: ROCHE
  Company Number: CN-BoehringerIngelheim-2024-BI-066322

PATIENT
  Age: 87 Year
  Sex: Male
  Weight: 55.0 kg

DRUGS (3)
  1. ALTEPLASE [Suspect]
     Active Substance: ALTEPLASE
     Indication: Cerebral infarction
     Dosage: THE FIRST BOLUS WAS 4.95MG
     Route: 042
     Dates: start: 20241116, end: 20241116
  2. ALTEPLASE [Suspect]
     Active Substance: ALTEPLASE
     Dosage: THE REMAINING DRIP WAS COMPLETED FOR ABOUT 1 HOUR, AT 11:25, THE INFUSION WAS COMPLETED
     Route: 042
     Dates: start: 20241116, end: 20241116
  3. SODIUM CHLORIDE [Concomitant]
     Active Substance: SODIUM CHLORIDE
     Indication: Drug therapy
     Route: 042
     Dates: start: 20241116, end: 20241116

REACTIONS (2)
  - Cerebral haemorrhage [Recovering/Resolving]
  - Off label use [Unknown]

NARRATIVE: CASE EVENT DATE: 20241117
